FAERS Safety Report 5974225-8 (Version None)
Quarter: 2008Q4

REPORT INFORMATION
  Report Type: 
  Country: None (occurrence: None)
  Receive Date: 20081201
  Receipt Date: 20081125
  Transmission Date: 20090506
  Serious: Yes (Other)
  Sender: FDA-Public Use
  Company Number: JP-PFIZER INC-2008082603

PATIENT
  Sex: Male
  Weight: 45 kg

DRUGS (13)
  1. GABAPEN [Suspect]
     Indication: EPILEPSY
     Route: 048
     Dates: start: 20080108
  2. PENMALIN [Suspect]
     Route: 042
     Dates: start: 20080504, end: 20080507
  3. RIVOTRIL [Concomitant]
     Route: 048
     Dates: start: 20061106
  4. TEGRETOL [Concomitant]
  5. DEPAKENE [Concomitant]
     Route: 048
     Dates: start: 20061106
  6. ALL OTHER THERAPEUTIC PRODUCTS [Concomitant]
     Route: 048
     Dates: start: 20061106
  7. LASIX [Concomitant]
     Route: 048
     Dates: start: 20070221
  8. DORAL [Concomitant]
     Route: 048
     Dates: start: 20070411
  9. BISOLVON [Concomitant]
     Route: 048
     Dates: start: 20070227
  10. MUCODYNE [Concomitant]
     Route: 048
     Dates: start: 20070227
  11. MIYARI BACTERIA [Concomitant]
     Route: 048
     Dates: start: 20070222
  12. CLARITHROMYCIN [Concomitant]
     Route: 048
     Dates: start: 20080331
  13. ZADITEN [Concomitant]
     Route: 048
     Dates: start: 20070220

REACTIONS (1)
  - NEUTROPHIL COUNT DECREASED [None]
